FAERS Safety Report 7779742-6 (Version None)
Quarter: 2011Q3

REPORT INFORMATION
  Report Type: 
  Country: None (occurrence: None)
  Receive Date: 20110927
  Receipt Date: 20100527
  Transmission Date: 20111222
  Serious: No
  Sender: FDA-Public Use
  Company Number: US-ASTRAZENECA-2010SE17260

PATIENT
  Age: 60 Year
  Sex: Female
  Weight: 81.6 kg

DRUGS (11)
  1. SEROQUEL [Suspect]
     Route: 048
  2. SEROQUEL [Suspect]
     Route: 048
     Dates: start: 20070101
  3. FAMOTIDINE [Concomitant]
  4. SEROQUEL [Suspect]
     Indication: MAJOR DEPRESSION
     Route: 048
  5. SEROQUEL [Suspect]
     Route: 048
     Dates: start: 20070101
  6. KLONOPIN [Concomitant]
     Indication: DEPRESSION
  7. CELEXA [Concomitant]
     Indication: DEPRESSION
  8. TRAZODONE HCL [Concomitant]
     Indication: DEPRESSION
  9. SEROQUEL [Suspect]
     Route: 048
  10. SEROQUEL [Suspect]
     Indication: DEPRESSION
     Route: 048
  11. LEVOTHYROIDINE [Concomitant]

REACTIONS (4)
  - BARRETT'S OESOPHAGUS [None]
  - ENDOSCOPY UPPER GASTROINTESTINAL TRACT [None]
  - DEPRESSION [None]
  - WEIGHT INCREASED [None]
